FAERS Safety Report 13649878 (Version 2)
Quarter: 2017Q2

REPORT INFORMATION
  Report Type: Spontaneous
  Country: TW (occurrence: TW)
  Receive Date: 20170614
  Receipt Date: 20170627
  Transmission Date: 20170830
  Serious: Yes (Death, Hospitalization, Other)
  Sender: FDA-Public Use
  Company Number: TW-ACTELION-A-CH2017-154912

PATIENT
  Age: 84 Year
  Sex: Female

DRUGS (3)
  1. OPSUMIT [Suspect]
     Active Substance: MACITENTAN
     Indication: PULMONARY ARTERIAL HYPERTENSION
     Dosage: 10 MG, OD
     Route: 048
     Dates: start: 20170518
  2. REVATIO [Concomitant]
     Active Substance: SILDENAFIL CITRATE
     Indication: PULMONARY ARTERIAL HYPERTENSION
     Dosage: 20 MG, TID
     Route: 048
     Dates: start: 20170518
  3. FURIDE [Concomitant]
     Dosage: 20 MG, UNK
     Route: 048
     Dates: start: 20170518

REACTIONS (7)
  - Periorbital haematoma [Fatal]
  - Fall [Fatal]
  - Syncope [Unknown]
  - Loss of consciousness [Fatal]
  - Subarachnoid haemorrhage [Fatal]
  - Head discomfort [Fatal]
  - Chest X-ray abnormal [Unknown]

NARRATIVE: CASE EVENT DATE: 20170601
